FAERS Safety Report 8232461-4 (Version None)
Quarter: 2012Q1

REPORT INFORMATION
  Report Type: 
  Country: None (occurrence: None)
  Receive Date: 20120320
  Receipt Date: 20120312
  Transmission Date: 20120608
  Serious: Yes (Hospitalization)
  Sender: FDA-Public Use
  Company Number: WAES 1203USA01732

PATIENT
  Age: 70 Year
  Sex: Male

DRUGS (9)
  1. LASIX [Suspect]
     Dosage: UNK
  2. ANGIOTENSIN AMIDE [Concomitant]
  3. INSULIN ASPART [Suspect]
     Indication: TYPE 2 DIABETES MELLITUS
     Dosage: 65 IU/UNK
  4. CARVEDILOL [Concomitant]
  5. BLINDED THERAPY [Suspect]
     Indication: TYPE 2 DIABETES MELLITUS
     Dosage: UNK
     Dates: start: 20101220
  6. BLINDED THERAPY [Suspect]
     Indication: TYPE 2 DIABETES MELLITUS
     Dosage: UNK
     Dates: start: 20101210
  7. INSULIN DETEMIR [Suspect]
     Indication: TYPE 2 DIABETES MELLITUS
     Dosage: 75 IU/UNK
  8. PRINIVIL [Suspect]
     Indication: PRODUCT USED FOR UNKNOWN INDICATION
     Dosage: PO
     Route: 048
  9. ASPIRIN [Concomitant]

REACTIONS (13)
  - NAUSEA [None]
  - HYPERKALAEMIA [None]
  - ABDOMINAL PAIN [None]
  - HYPOTENSION [None]
  - ANGINA PECTORIS [None]
  - RENAL FAILURE ACUTE [None]
  - CHILLS [None]
  - ANTIBIOTIC RESISTANT STAPHYLOCOCCUS TEST POSITIVE [None]
  - SYSTEMIC INFLAMMATORY RESPONSE SYNDROME [None]
  - CELLULITIS [None]
  - DISEASE RECURRENCE [None]
  - DIARRHOEA [None]
  - DIZZINESS [None]
